FAERS Safety Report 7353973-1 (Version None)
Quarter: 2011Q1

REPORT INFORMATION
  Report Type: 
  Country: None (occurrence: None)
  Receive Date: 20110315
  Receipt Date: 20110302
  Transmission Date: 20110831
  Serious: Yes (Other)
  Sender: FDA-Public Use
  Company Number: PHHY2010IE62633

PATIENT
  Sex: Female
  Weight: 73 kg

DRUGS (4)
  1. RASILEZ [Suspect]
     Indication: HYPERTENSION
     Dosage: 150 MG, ONCE DAILY
     Route: 048
     Dates: start: 20100801
  2. ISTIN [Concomitant]
     Indication: HYPERTENSION
     Dosage: 10 MG, UNK
     Route: 048
  3. SINEMET [Concomitant]
     Indication: PARKINSON'S DISEASE
     Dosage: 300 MG, UNK
     Route: 048
  4. ELTROXIN [Concomitant]
     Indication: HYPOTHYROIDISM
     Dosage: 50 MG, UNK
     Route: 048

REACTIONS (2)
  - RENAL IMPAIRMENT [None]
  - BLOOD CREATININE INCREASED [None]
